FAERS Safety Report 19545274 (Version 1)
Quarter: 2021Q3

REPORT INFORMATION
  Report Type: Spontaneous
  Country: US (occurrence: US)
  Receive Date: 20210713
  Receipt Date: 20210713
  Transmission Date: 20211014
  Serious: Yes (Hospitalization)
  Sender: FDA-Public Use
  Company Number: US-ANAZAOHEALTH CORPORATION-2113768

PATIENT
  Age: 66 Year
  Sex: Female

DRUGS (2)
  1. ESTRADIOL PELLET [Suspect]
     Active Substance: ESTRADIOL
     Indication: HORMONE REPLACEMENT THERAPY
     Route: 058
     Dates: start: 2017
  2. TESTOSTERONE. [Suspect]
     Active Substance: TESTOSTERONE
     Route: 058
     Dates: start: 2017

REACTIONS (2)
  - Cerebrovascular accident [Recovering/Resolving]
  - Thrombosis [Recovering/Resolving]

NARRATIVE: CASE EVENT DATE: 20210613
